FAERS Safety Report 5139756-1 (Version None)
Quarter: 2006Q4

REPORT INFORMATION
  Report Type: 
  Country: None (occurrence: None)
  Receive Date: 20061024
  Receipt Date: 20061012
  Transmission Date: 20070319
  Serious: Yes (Hospitalization, Disabling)
  Sender: FDA-Public Use
  Company Number: FRWYE859505SEP06

PATIENT
  Age: 34 Year
  Sex: Female

DRUGS (3)
  1. EFFEXOR [Suspect]
     Indication: DEPRESSION
     Dosage: 25 TO 50 MG TOTAL DAILY ORAL
     Route: 048
     Dates: start: 20060804, end: 20060825
  2. POLARAMINE [Suspect]
     Indication: HYPERSENSITIVITY
     Dosage: 6 MG ORAL
     Route: 048
     Dates: end: 20060101
  3. LORAZEPAM [Concomitant]

REACTIONS (6)
  - ACCOMMODATION DISORDER [None]
  - FATIGUE [None]
  - INCORRECT DOSE ADMINISTERED [None]
  - MIGRAINE [None]
  - MYDRIASIS [None]
  - OPTIC NEURITIS [None]
